FAERS Safety Report 16139148 (Version 1)
Quarter: 2019Q1

REPORT INFORMATION
  Report Type: Spontaneous
  Country: US (occurrence: US)
  Receive Date: 20190330
  Receipt Date: 20190330
  Transmission Date: 20190418
  Serious: No
  Sender: FDA-Public Use
  Company Number: PHEH2019US013601

PATIENT
  Sex: Female

DRUGS (4)
  1. NODOZ [Concomitant]
     Active Substance: CAFFEINE
     Indication: SOMNOLENCE
  2. TRAMADOL HYDROCHLORIDE. [Suspect]
     Active Substance: TRAMADOL HYDROCHLORIDE
     Indication: INSOMNIA
     Route: 065
  3. NODOZ [Concomitant]
     Active Substance: CAFFEINE
     Indication: INSOMNIA
     Dosage: UNK
     Route: 065
  4. GABAPENTIN. [Suspect]
     Active Substance: GABAPENTIN
     Indication: INSOMNIA
     Dosage: UNK
     Route: 065

REACTIONS (2)
  - Product use in unapproved indication [Unknown]
  - Muscle spasms [Unknown]
